FAERS Safety Report 6829039-3 (Version None)
Quarter: 2010Q3

REPORT INFORMATION
  Report Type: 
  Country: None (occurrence: None)
  Receive Date: 20100709
  Receipt Date: 20070227
  Transmission Date: 20110219
  Serious: No
  Sender: FDA-Public Use
  Company Number: US-PFIZER INC-2007016430

PATIENT
  Sex: Female
  Weight: 52.16 kg

DRUGS (8)
  1. CHANTIX [Suspect]
     Indication: SMOKING CESSATION THERAPY
     Dates: start: 20070220
  2. SPIRIVA [Concomitant]
  3. ADVAIR DISKUS 100/50 [Concomitant]
  4. ALL OTHER THERAPEUTIC PRODUCTS [Concomitant]
  5. HYDROCHLOROTHIAZIDE [Concomitant]
  6. ALTACE [Concomitant]
  7. ZOCOR [Concomitant]
  8. ALBUTEROL [Concomitant]

REACTIONS (3)
  - DIZZINESS [None]
  - TREMOR [None]
  - UPPER RESPIRATORY TRACT INFECTION [None]
